FAERS Safety Report 14626744 (Version 1)
Quarter: 2018Q1

REPORT INFORMATION
  Report Type: Spontaneous
  Country: IL (occurrence: IL)
  Receive Date: 20180312
  Receipt Date: 20180312
  Transmission Date: 20180509
  Serious: Yes (Hospitalization, Other)
  Sender: FDA-Public Use
  Company Number: US-ASTRAZENECA-2018SE19888

PATIENT
  Age: 16 Month
  Sex: Male

DRUGS (1)
  1. SYNAGIS [Suspect]
     Active Substance: PALIVIZUMAB
     Indication: CARDIAC DISORDER
     Route: 030
     Dates: start: 20171228

REACTIONS (5)
  - Respiratory syncytial virus bronchiolitis [Recovering/Resolving]
  - Cardiac dysfunction [Recovering/Resolving]
  - Cardiac failure acute [Recovering/Resolving]
  - Pulmonary function test decreased [Recovering/Resolving]
  - Respiratory syncytial virus infection [Not Recovered/Not Resolved]
